FAERS Safety Report 17621192 (Version 1)
Quarter: 2020Q2

REPORT INFORMATION
  Report Type: Spontaneous
  Country: FR (occurrence: FR)
  Receive Date: 20200403
  Receipt Date: 20200403
  Transmission Date: 20200713
  Serious: Yes (Other)
  Sender: FDA-Public Use
  Company Number: FR-TEVA-2020-FR-1218720

PATIENT
  Age: 67 Year
  Sex: Male

DRUGS (4)
  1. SELEGILINE [Suspect]
     Active Substance: SELEGILINE
     Route: 062
  2. SELEGILINE [Suspect]
     Active Substance: SELEGILINE
     Indication: MAJOR DEPRESSION
     Dosage: INITIAL DOSAGE NOT STATED
     Route: 062
  3. PRAMIPEXOLE. [Suspect]
     Active Substance: PRAMIPEXOLE
     Route: 065
  4. PRAMIPEXOLE. [Suspect]
     Active Substance: PRAMIPEXOLE
     Indication: MAJOR DEPRESSION
     Dosage: INITIAL DOSAGE NOT STATED
     Route: 065

REACTIONS (4)
  - Off label use [Unknown]
  - Nausea [Unknown]
  - Blood pressure increased [Unknown]
  - Erectile dysfunction [Unknown]
